FAERS Safety Report 7498652-5 (Version None)
Quarter: 2011Q2

REPORT INFORMATION
  Report Type: 
  Country: None (occurrence: None)
  Receive Date: 20110524
  Receipt Date: 20110516
  Transmission Date: 20111010
  Serious: Yes (Hospitalization, Other)
  Sender: FDA-Public Use
  Company Number: FR-ASTELLAS-2011EU002536

PATIENT
  Sex: Female

DRUGS (8)
  1. LORAZEPAM [Concomitant]
     Indication: ANXIETY
     Dosage: 1 MG, UNKNOWN/D
     Route: 048
     Dates: start: 20050101
  2. BISOPROLOL FUMARATE [Concomitant]
     Indication: HYPERTENSION
     Dosage: 1.25 MG, UNKNOWN/D
     Route: 048
     Dates: start: 20060101
  3. AMLODIPINE [Concomitant]
     Indication: HYPERTENSION
     Dosage: 5 MG, UNKNOWN/D
     Route: 048
     Dates: start: 20050101
  4. VESICARE [Suspect]
     Indication: HYPERTONIC BLADDER
  5. PAROXETINE HCL [Concomitant]
     Indication: DEPRESSION
     Dosage: 20 MG, UNKNOWN/D
     Route: 048
     Dates: start: 20060101
  6. NEXIUM [Concomitant]
     Indication: GASTROOESOPHAGEAL REFLUX DISEASE
     Dosage: 20 MG, UNKNOWN/D
     Route: 048
     Dates: start: 20100101
  7. FENOFIBRATE [Concomitant]
     Dosage: 160 MG, UNKNOWN/D
     Route: 048
     Dates: start: 20050101
  8. VESICARE [Suspect]
     Indication: URINARY INCONTINENCE
     Dosage: 1 DF, UID/QD
     Route: 048
     Dates: start: 20110323, end: 20110405

REACTIONS (6)
  - DISORIENTATION [None]
  - FALL [None]
  - HALLUCINATION [None]
  - EPILEPSY [None]
  - CONFUSIONAL STATE [None]
  - ESCHERICHIA URINARY TRACT INFECTION [None]
